FAERS Safety Report 10649546 (Version 1)
Quarter: 2014Q4

REPORT INFORMATION
  Report Type: Spontaneous
  Country: US (occurrence: None)
  Receive Date: 20141205
  Receipt Date: 20141205
  Transmission Date: 20150529
  Serious: No
  Sender: FDA-Public Use
  Company Number: 163-POMAL-14082606

PATIENT
  Age: 82 Year
  Sex: Female

DRUGS (11)
  1. VITAMIN B12(CYANOCOBALAMIN) [Concomitant]
  2. COLACE(DOCUSATE SODIUM) [Concomitant]
  3. POMALYST [Suspect]
     Active Substance: POMALIDOMIDE
     Indication: PLASMA CELL MYELOMA
     Route: 048
     Dates: start: 201405
  4. ZOFRAN(ONDANSETRON HYDROCHLORIDE) [Concomitant]
  5. VITAMIN B6 [Concomitant]
     Active Substance: PYRIDOXINE HYDROCHLORIDE
  6. DIPHENOXYLATE HCL [Concomitant]
  7. OMEPRAZOLE(OMEPRAZOLE) [Concomitant]
     Active Substance: OMEPRAZOLE
  8. OXYCODONE [Concomitant]
     Active Substance: OXYCODONE
  9. LORAZEPAM(LORAZEPAM) [Concomitant]
     Active Substance: LORAZEPAM
  10. LEVAQUIN(LEVOFLOXACIN) [Concomitant]
  11. CALCIUM WITH VITAMIN D (CALCIUM WITH VITAMIN D/01233101/) [Concomitant]

REACTIONS (5)
  - Oedema peripheral [None]
  - Burning sensation [None]
  - Paraesthesia [None]
  - Pain in extremity [None]
  - Memory impairment [None]

NARRATIVE: CASE EVENT DATE: 2014
